FAERS Safety Report 18845364 (Version 1)
Quarter: 2021Q1

REPORT INFORMATION
  Report Type: Spontaneous
  Country: BR (occurrence: BR)
  Receive Date: 20210204
  Receipt Date: 20210204
  Transmission Date: 20210419
  Serious: Yes (Death, Other)
  Sender: FDA-Public Use
  Company Number: BR-BEH-2021127971

PATIENT
  Age: 73 Year
  Sex: Female

DRUGS (1)
  1. HUMAN IMMUNOGLOBULIN (INN) [Suspect]
     Active Substance: HUMAN IMMUNOGLOBULIN G
     Indication: ENCEPHALITIS AUTOIMMUNE
     Route: 042

REACTIONS (2)
  - Off label use [Fatal]
  - Drug ineffective for unapproved indication [Fatal]
